FAERS Safety Report 16297580 (Version 3)
Quarter: 2020Q4

REPORT INFORMATION
  Report Type: Spontaneous
  Country: HN (occurrence: HN)
  Receive Date: 20190510
  Receipt Date: 20201231
  Transmission Date: 20210113
  Serious: Yes (Hospitalization, Other)
  Sender: FDA-Public Use
  Company Number: PHHY2019HN068224

PATIENT
  Age: 56 Year
  Sex: Male
  Weight: 66.8 kg

DRUGS (4)
  1. TASIGNA [Suspect]
     Active Substance: NILOTINIB
     Indication: CHRONIC MYELOID LEUKAEMIA
     Dosage: 400 MG, BID
     Route: 065
     Dates: start: 20181115
  2. TASIGNA [Suspect]
     Active Substance: NILOTINIB
     Dosage: 200 MG, QOD (ON ALTERNATE DAYS)
     Route: 065
  3. TASIGNA [Suspect]
     Active Substance: NILOTINIB
     Dosage: 200 MG, QD
     Route: 065
     Dates: end: 20190120
  4. GLIVEC [Suspect]
     Active Substance: IMATINIB MESYLATE
     Indication: PRODUCT USED FOR UNKNOWN INDICATION
     Dosage: 400 MG, QD
     Route: 065
     Dates: start: 20180215, end: 20181113

REACTIONS (8)
  - Headache [Recovered/Resolved]
  - Chills [Recovered/Resolved]
  - Rash [Not Recovered/Not Resolved]
  - Cytogenetic analysis abnormal [Recovered/Resolved]
  - Vomiting [Recovered/Resolved]
  - Diarrhoea [Recovered/Resolved]
  - Inappropriate schedule of product administration [Unknown]
  - Thrombocytopenia [Recovered/Resolved]

NARRATIVE: CASE EVENT DATE: 201901
